FAERS Safety Report 16886916 (Version 38)
Quarter: 2023Q1

REPORT INFORMATION
  Report Type: Spontaneous
  Country: US (occurrence: US)
  Receive Date: 20191004
  Receipt Date: 20230209
  Transmission Date: 20230417
  Serious: Yes (Life-Threatening, Hospitalization, Other)
  Sender: FDA-Public Use
  Company Number: US-GLAXOSMITHKLINE-US2019TSO170833

PATIENT
  Age: 67 Year
  Sex: Female

DRUGS (31)
  1. TUMS [Interacting]
     Active Substance: CALCIUM CARBONATE
     Indication: Product used for unknown indication
     Dosage: UNK
  2. ZEJULA [Suspect]
     Active Substance: NIRAPARIB
     Indication: Ovarian cancer
     Dosage: 300 MG
     Dates: start: 20190828
  3. ZEJULA [Suspect]
     Active Substance: NIRAPARIB
     Dosage: 300 MG
     Dates: start: 20190905, end: 20190920
  4. ZEJULA [Suspect]
     Active Substance: NIRAPARIB
     Dosage: 100 MG, QD
     Route: 065
     Dates: start: 20191022
  5. ZEJULA [Suspect]
     Active Substance: NIRAPARIB
     Dosage: 100 MG, QD
     Route: 048
  6. ZEJULA [Suspect]
     Active Substance: NIRAPARIB
     Dosage: 100 MG, DAILY
  7. ZEJULA [Suspect]
     Active Substance: NIRAPARIB
     Dosage: 100 MG, QD
     Dates: start: 20191022, end: 202010
  8. ZEJULA [Suspect]
     Active Substance: NIRAPARIB
     Dosage: 100 MG, QD
     Dates: start: 202010
  9. ZEJULA [Suspect]
     Active Substance: NIRAPARIB
     Dosage: 100 MG, QD
     Route: 048
  10. ZEJULA [Suspect]
     Active Substance: NIRAPARIB
     Dosage: 100 MG, QD
  11. ZEJULA [Suspect]
     Active Substance: NIRAPARIB
     Dosage: 100 MG, QD
     Route: 048
  12. ZEJULA [Suspect]
     Active Substance: NIRAPARIB
     Dosage: 100 MG, QD
  13. LIPITOR [Interacting]
     Active Substance: ATORVASTATIN CALCIUM
     Indication: Blood cholesterol increased
     Dosage: UNK
  14. XARELTO [Suspect]
     Active Substance: RIVAROXABAN
     Indication: Product used for unknown indication
     Dosage: UNK
  15. COUMADIN [Concomitant]
     Active Substance: WARFARIN SODIUM
     Indication: Product used for unknown indication
     Dosage: 5 MG, QD
  16. MAGNESIUM [Concomitant]
     Active Substance: MAGNESIUM
     Indication: Blood magnesium decreased
     Dosage: 125 MG, TID
  17. MAGNESIUM [Concomitant]
     Active Substance: MAGNESIUM
     Dosage: UNK, TID
  18. COVID 19 VACCINE [Concomitant]
     Indication: COVID-19 prophylaxis
     Dosage: UNK
  19. VITAMIN B6 [Concomitant]
     Active Substance: PYRIDOXINE HYDROCHLORIDE
     Indication: Product used for unknown indication
     Dosage: 50 MG, QD
  20. VITAMIN B12 [Concomitant]
     Active Substance: CYANOCOBALAMIN
     Indication: Product used for unknown indication
     Dosage: 1000 UG, QD
  21. POTASSIUM CHLORIDE [Concomitant]
     Active Substance: POTASSIUM CHLORIDE
     Indication: Product used for unknown indication
     Dosage: 20 MEQ, BID
  22. FUROSEMIDE [Concomitant]
     Active Substance: FUROSEMIDE
     Indication: Product used for unknown indication
     Dosage: 20 MG, QD
  23. METOPROLOL TARTRATE [Concomitant]
     Active Substance: METOPROLOL TARTRATE
     Indication: Product used for unknown indication
     Dosage: 50 MG, QD
  24. CLOPIDOGREL [Concomitant]
     Active Substance: CLOPIDOGREL BISULFATE
     Indication: Product used for unknown indication
     Dosage: 75 MG, QD
  25. ALPHA LIPOIC ACID [Concomitant]
     Active Substance: .ALPHA.-LIPOIC ACID
     Indication: Product used for unknown indication
     Dosage: 200 MG, QD
  26. METOPROLOL [Concomitant]
     Active Substance: METOPROLOL
     Indication: Product used for unknown indication
     Dosage: UNK
  27. CRESTOR [Concomitant]
     Active Substance: ROSUVASTATIN CALCIUM
     Indication: Blood cholesterol increased
     Dosage: 10 MG, QD
  28. CRESTOR [Concomitant]
     Active Substance: ROSUVASTATIN CALCIUM
     Dosage: 20 MG
  29. GABAPENTIN [Concomitant]
     Active Substance: GABAPENTIN
     Indication: Neuropathy peripheral
     Dosage: 300 MG, QD
  30. GABAPENTIN [Concomitant]
     Active Substance: GABAPENTIN
     Dosage: 600 MG, TID
  31. GABAPENTIN [Concomitant]
     Active Substance: GABAPENTIN
     Dosage: 800 MG, TID

REACTIONS (30)
  - Platelet count decreased [Recovered/Resolved]
  - White blood cell count decreased [Recovering/Resolving]
  - Stent placement [Unknown]
  - Pulmonary oedema [Not Recovered/Not Resolved]
  - Oesophageal candidiasis [Recovered/Resolved]
  - Oesophageal ulcer [Recovered/Resolved]
  - Haemorrhage [Unknown]
  - Neutrophil count decreased [Recovered/Resolved]
  - Neuropathy peripheral [Not Recovered/Not Resolved]
  - Thrombosis [Unknown]
  - Drug interaction [Unknown]
  - Electrocardiogram abnormal [Unknown]
  - Cardiac stress test abnormal [Unknown]
  - Carbohydrate antigen 125 increased [Not Recovered/Not Resolved]
  - Decreased appetite [Recovered/Resolved]
  - Weight decreased [Not Recovered/Not Resolved]
  - Constipation [Recovered/Resolved]
  - Red blood cell count decreased [Not Recovered/Not Resolved]
  - Fatigue [Not Recovered/Not Resolved]
  - Palpitations [Unknown]
  - Dyspnoea [Not Recovered/Not Resolved]
  - Heart rate increased [Recovered/Resolved]
  - Blood pressure decreased [Recovered/Resolved]
  - Full blood count abnormal [Unknown]
  - Pulse abnormal [Unknown]
  - Tumour marker increased [Recovering/Resolving]
  - Blood cholesterol increased [Not Recovered/Not Resolved]
  - Cataract operation [Not Recovered/Not Resolved]
  - Diarrhoea [Recovering/Resolving]
  - Product dose omission issue [Unknown]

NARRATIVE: CASE EVENT DATE: 20210901
